FAERS Safety Report 17037721 (Version 1)
Quarter: 2019Q4

REPORT INFORMATION
  Report Type: Spontaneous
  Country: RO (occurrence: RO)
  Receive Date: 20191115
  Receipt Date: 20191115
  Transmission Date: 20200122
  Serious: Yes (Other)
  Sender: FDA-Public Use
  Company Number: RO-MYLANLABS-2019M1109437

PATIENT
  Age: 64 Year

DRUGS (1)
  1. PROPAFENONE. [Suspect]
     Active Substance: PROPAFENONE
     Indication: ATRIAL FIBRILLATION
     Dosage: UNK

REACTIONS (3)
  - Cell death [Recovered/Resolved]
  - Nausea [Recovered/Resolved]
  - Cholestasis [Recovered/Resolved]
